FAERS Safety Report 4538681-4 (Version None)
Quarter: 2004Q4

REPORT INFORMATION
  Report Type: 
  Country: None (occurrence: None)
  Receive Date: 20041222
  Receipt Date: 20041203
  Transmission Date: 20050328
  Serious: Yes (Hospitalization)
  Sender: FDA-Public Use
  Company Number: 04-317

PATIENT

DRUGS (8)
  1. ASPIRIN [Suspect]
     Indication: OSTEOARTHRITIS
  2. ASPIRIN [Suspect]
     Indication: RHEUMATOID ARTHRITIS
  3. ACETAMINOPHEN [Suspect]
     Indication: OSTEOARTHRITIS
  4. ACETAMINOPHEN [Suspect]
     Indication: RHEUMATOID ARTHRITIS
  5. IBUPROFEN [Suspect]
     Indication: OSTEOARTHRITIS
  6. IBUPROFEN [Suspect]
     Indication: RHEUMATOID ARTHRITIS
  7. CORTICOSTEROIDS (CORTICOSTEROIDS) [Concomitant]
  8. ANALGESICS NOS (ANALGESICS) [Concomitant]

REACTIONS (5)
  - GASTRIC OUTLET OBSTRUCTION [None]
  - GASTRITIS [None]
  - LOWER GASTROINTESTINAL HAEMORRHAGE [None]
  - ULCER [None]
  - UPPER GASTROINTESTINAL HAEMORRHAGE [None]
